FAERS Safety Report 8037496-2 (Version None)
Quarter: 2012Q1

REPORT INFORMATION
  Report Type: 
  Country: None (occurrence: None)
  Receive Date: 20120111
  Receipt Date: 20120106
  Transmission Date: 20120608
  Serious: No
  Sender: FDA-Public Use
  Company Number: US-PFIZER INC-2012004984

PATIENT
  Sex: Female

DRUGS (3)
  1. ZYPREXA [Suspect]
     Indication: DEPRESSION
     Dosage: UNK
  2. PRISTIQ [Suspect]
     Indication: DEPRESSION
     Dosage: 100 MG, DAILY
     Dates: start: 20110101
  3. EFFEXOR [Concomitant]
     Dosage: UNK

REACTIONS (4)
  - NIGHT SWEATS [None]
  - INCREASED APPETITE [None]
  - WEIGHT INCREASED [None]
  - HYPERSENSITIVITY [None]
